FAERS Safety Report 6148500-0 (Version None)
Quarter: 2009Q2

REPORT INFORMATION
  Report Type: 
  Country: None (occurrence: None)
  Receive Date: 20090406
  Receipt Date: 20090406
  Transmission Date: 20091009
  Serious: Yes (Hospitalization)
  Sender: FDA-Public Use
  Company Number: None

PATIENT
  Age: 84 Year
  Sex: Male
  Weight: 56.7 kg

DRUGS (1)
  1. MOBIC [Suspect]
     Indication: ARTHRITIS
     Dosage: UNK UNK PO
     Route: 048
     Dates: start: 20080707, end: 20080710

REACTIONS (4)
  - ANGIOEDEMA [None]
  - ANOXIC ENCEPHALOPATHY [None]
  - CONVULSION [None]
  - PNEUMONIA [None]
